FAERS Safety Report 11336132 (Version 2)
Quarter: 2015Q3

REPORT INFORMATION
  Report Type: Report from Study
  Country: CA (occurrence: CA)
  Receive Date: 20150804
  Receipt Date: 20150813
  Transmission Date: 20151125
  Serious: Yes (Other)
  Sender: FDA-Public Use
  Company Number: PHHY2015CA089466

PATIENT
  Age: 71 Year
  Sex: Female

DRUGS (1)
  1. ACLASTA [Suspect]
     Active Substance: ZOLEDRONIC ACID
     Indication: OSTEOPOROSIS
     Dosage: 5 MG/100 ML, UNK
     Route: 042
     Dates: start: 2010

REACTIONS (2)
  - Fall [Unknown]
  - Cervical vertebral fracture [Unknown]

NARRATIVE: CASE EVENT DATE: 20150228
